FAERS Safety Report 8025586-X (Version None)
Quarter: 2012Q1

REPORT INFORMATION
  Report Type: 
  Country: None (occurrence: None)
  Receive Date: 20120105
  Receipt Date: 20120102
  Transmission Date: 20120608
  Serious: No
  Sender: FDA-Public Use
  Company Number: US-B.I. PHARMACEUTICALS,INC./RIDGEFIELD-2012-BP-00070BP

PATIENT
  Age: 61 Year
  Sex: Female

DRUGS (2)
  1. ZANTAC [Suspect]
     Dosage: 150 MG
     Route: 048
     Dates: start: 20111201
  2. SYNTHROID [Concomitant]

REACTIONS (1)
  - DYSGEUSIA [None]
